FAERS Safety Report 14162928 (Version 1)
Quarter: 2017Q4

REPORT INFORMATION
  Report Type: Spontaneous
  Country: JP (occurrence: JP)
  Receive Date: 20171106
  Receipt Date: 20171106
  Transmission Date: 20180321
  Serious: Yes (Other)
  Sender: FDA-Public Use
  Company Number: JP-PFIZER INC-2017471514

PATIENT
  Age: 69 Year
  Sex: Female

DRUGS (11)
  1. DEPAKENE [Concomitant]
     Active Substance: VALPROIC ACID
  2. THYRADIN [Concomitant]
     Active Substance: LEVOTHYROXINE
  3. PHENOBAL [Concomitant]
     Active Substance: PHENOBARBITAL
  4. SPIRONOLACTONE. [Concomitant]
     Active Substance: SPIRONOLACTONE
  5. XARELTO [Concomitant]
     Active Substance: RIVAROXABAN
  6. GASLON [Concomitant]
     Active Substance: IRSOGLADINE MALEATE
  7. ZITHROMAC SR 2G [Suspect]
     Active Substance: AZITHROMYCIN MONOHYDRATE
     Indication: PNEUMONIA
     Dosage: 2 G, DAILY
     Route: 048
     Dates: start: 20171026
  8. PYRETHIA [Concomitant]
     Active Substance: PROMETHAZINE HYDROCHLORIDE
  9. TALION [Concomitant]
     Active Substance: BEPOTASTINE
  10. DOGMATYL [Concomitant]
     Active Substance: SULPIRIDE
  11. RABEPRAZOLE [Concomitant]
     Active Substance: RABEPRAZOLE

REACTIONS (1)
  - Epilepsy [Recovering/Resolving]

NARRATIVE: CASE EVENT DATE: 20171028
